FAERS Safety Report 10906522 (Version 1)
Quarter: 2015Q1

REPORT INFORMATION
  Report Type: Report from Study
  Country: US (occurrence: US)
  Receive Date: 20150312
  Receipt Date: 20150312
  Transmission Date: 20150721
  Serious: Yes (Hospitalization)
  Sender: FDA-Public Use
  Company Number: US-ROCHE-1548892

PATIENT
  Age: 13 Year
  Sex: Male
  Weight: 25 kg

DRUGS (9)
  1. VASOTEC [Concomitant]
     Active Substance: ENALAPRIL MALEATE
     Route: 048
  2. EPOGEN [Concomitant]
     Active Substance: ERYTHROPOIETIN
     Dosage: TOTAL DOSE 14000 UNITS/ML UNDER THE SKIN,?20000 UNITS/ML
     Route: 065
  3. RISPERDAL [Concomitant]
     Active Substance: RISPERIDONE
     Route: 048
  4. ZANTAC [Concomitant]
     Active Substance: RANITIDINE HYDROCHLORIDE
     Route: 048
  5. RENVELA [Concomitant]
     Active Substance: SEVELAMER CARBONATE
     Dosage: TAKE 5 TABLETS
     Route: 048
     Dates: start: 20140916, end: 20140916
  6. NUTROPIN [Suspect]
     Active Substance: SOMATROPIN
     Indication: CHRONIC KIDNEY DISEASE
     Dosage: 10 MG/1.5ML (6.7MG/ML) CRTG, INJECTION 1.9 ML
     Route: 058
     Dates: start: 20140319
  7. LIPITOR [Concomitant]
     Active Substance: ATORVASTATIN CALCIUM
     Route: 048
  8. NIFEREX (UNITED STATES) [Concomitant]
     Route: 048
  9. ZYRTEC [Concomitant]
     Active Substance: CETIRIZINE HYDROCHLORIDE
     Route: 048

REACTIONS (2)
  - Peritonitis [Unknown]
  - Sepsis [Unknown]

NARRATIVE: CASE EVENT DATE: 20150302
